FAERS Safety Report 8811533 (Version 1)
Quarter: 2012Q4

REPORT INFORMATION
  Report Type: Spontaneous
  Country: US (occurrence: None)
  Receive Date: 20120926
  Receipt Date: 20120926
  Transmission Date: 20130627
  Serious: Yes (Other)
  Sender: FDA-Public Use
  Company Number: None

PATIENT
  Age: 8 Year
  Sex: Female
  Weight: 27.22 kg

DRUGS (1)
  1. SINGULAIR [Suspect]
     Indication: ASTHMA
     Route: 048
     Dates: start: 20110801, end: 20120701

REACTIONS (5)
  - Abnormal behaviour [None]
  - Confusional state [None]
  - Obsessive-compulsive disorder [None]
  - Anxiety disorder [None]
  - Cognitive disorder [None]
